FAERS Safety Report 9674641 (Version 1)
Quarter: 2013Q4

REPORT INFORMATION
  Report Type: Spontaneous
  Country: US (occurrence: None)
  Receive Date: 20131106
  Receipt Date: 20131106
  Transmission Date: 20140711
  Serious: Yes (Other)
  Sender: FDA-Public Use
  Company Number: None

PATIENT
  Age: 37 Year
  Sex: Female
  Weight: 55.79 kg

DRUGS (1)
  1. FLORINEF [Suspect]
     Indication: POSTURAL ORTHOSTATIC TACHYCARDIA SYNDROME
     Route: 048
     Dates: start: 20131024, end: 20131105

REACTIONS (11)
  - Nausea [None]
  - Headache [None]
  - Abdominal pain upper [None]
  - Gingival bleeding [None]
  - Dry mouth [None]
  - Thirst [None]
  - Decreased appetite [None]
  - Acne [None]
  - Fatigue [None]
  - Fatigue [None]
  - No therapeutic response [None]
